FAERS Safety Report 19846143 (Version 2)
Quarter: 2021Q3

REPORT INFORMATION
  Report Type: Spontaneous
  Country: BR (occurrence: BR)
  Receive Date: 20210916
  Receipt Date: 20210924
  Transmission Date: 20211014
  Serious: No
  Sender: FDA-Public Use
  Company Number: BR-SA-2021SA301158

PATIENT
  Sex: Male
  Weight: 2.51 kg

DRUGS (2)
  1. CLEXANE (AMPOULE) [Suspect]
     Active Substance: ENOXAPARIN SODIUM
     Dosage: UNK
     Route: 064
     Dates: end: 20210907
  2. CLEXANE (AMPOULE) [Suspect]
     Active Substance: ENOXAPARIN SODIUM
     Dosage: UNK
     Route: 063

REACTIONS (2)
  - Foetal exposure during pregnancy [Unknown]
  - Exposure via breast milk [Unknown]
